FAERS Safety Report 12854129 (Version 3)
Quarter: 2017Q2

REPORT INFORMATION
  Report Type: Spontaneous
  Country: US (occurrence: US)
  Receive Date: 20161017
  Receipt Date: 20170424
  Transmission Date: 20170830
  Serious: No
  Sender: FDA-Public Use
  Company Number: US-PFIZER INC-2016482201

PATIENT
  Age: 12 Year
  Sex: Female

DRUGS (2)
  1. CHILDRENS ADVIL [Suspect]
     Active Substance: IBUPROFEN
     Indication: ARTHRALGIA
     Dosage: UNK, AS NEEDED (FOR 11 YRS TWICE A DAY)
     Dates: start: 20160917, end: 20160925
  2. ADVIL [Suspect]
     Active Substance: IBUPROFEN
     Indication: ARTHRALGIA
     Dosage: 400 MG, SINGLE
     Dates: start: 20160926, end: 20160926

REACTIONS (5)
  - Malaise [Recovered/Resolved]
  - Somnolence [Recovered/Resolved]
  - Rash macular [Recovered/Resolved]
  - Drug administered to patient of inappropriate age [Recovered/Resolved]
  - Pain in extremity [Recovered/Resolved]

NARRATIVE: CASE EVENT DATE: 20160926
